FAERS Safety Report 25125697 (Version 2)
Quarter: 2025Q2

REPORT INFORMATION
  Report Type: Spontaneous
  Country: US (occurrence: US)
  Receive Date: 20250326
  Receipt Date: 20250425
  Transmission Date: 20250716
  Serious: No
  Sender: PFIZER
  Company Number: US-PFIZER INC-PV202500035583

PATIENT
  Age: 4 Year
  Sex: Male
  Weight: 13.4 kg

DRUGS (5)
  1. GENOTROPIN [Suspect]
     Active Substance: SOMATROPIN
     Indication: Hypopituitarism
     Dosage: 0.5 MG, ALTERNATE DAY (0.5 MG ON EVEN DAYS, 0.6 MG ON ODD DAYS, 7 DAYS/WEEK)
  2. GENOTROPIN [Suspect]
     Active Substance: SOMATROPIN
     Indication: Growth hormone deficiency
     Dosage: 0.6 MG, ALTERNATE DAY (0.5 MG ON EVEN DAYS, 0.6 MG ON ODD DAYS, 7 DAYS/WEEK)
  3. GENOTROPIN [Suspect]
     Active Substance: SOMATROPIN
     Indication: Short stature
  4. GENOTROPIN [Suspect]
     Active Substance: SOMATROPIN
     Indication: Growth disorder
  5. GENOTROPIN [Suspect]
     Active Substance: SOMATROPIN
     Indication: Underweight

REACTIONS (1)
  - Blood growth hormone increased [Unknown]

NARRATIVE: CASE EVENT DATE: 20250208
